FAERS Safety Report 5380505-X (Version None)
Quarter: 2007Q3

REPORT INFORMATION
  Report Type: 
  Country: None (occurrence: None)
  Receive Date: 20070706
  Receipt Date: 20070608
  Transmission Date: 20080115
  Serious: No
  Sender: FDA-Public Use
  Company Number: A0654838A

PATIENT
  Age: 73 Year
  Sex: Female

DRUGS (5)
  1. TYKERB [Suspect]
     Indication: BREAST CANCER
     Dosage: 1250MG PER DAY
     Route: 048
     Dates: start: 20070601
  2. STEROID (UNSPECIFIED) [Concomitant]
  3. ANTI-EMETIC [Concomitant]
  4. THYROID TAB [Concomitant]
  5. BLOOD PRESSURE MEDICATION [Concomitant]

REACTIONS (1)
  - DIARRHOEA [None]
